FAERS Safety Report 9343832 (Version 1)
Quarter: 2013Q2

REPORT INFORMATION
  Report Type: Spontaneous
  Country: US (occurrence: US)
  Receive Date: 20130612
  Receipt Date: 20130612
  Transmission Date: 20140414
  Serious: No
  Sender: FDA-Public Use
  Company Number: US-MERCK-1306USA004629

PATIENT
  Sex: Male

DRUGS (1)
  1. SAPHRIS [Suspect]
     Dosage: UNK
     Route: 060
     Dates: start: 201303, end: 2013

REACTIONS (2)
  - Dyspnoea [Not Recovered/Not Resolved]
  - Paraesthesia oral [Not Recovered/Not Resolved]
